FAERS Safety Report 5940651-6 (Version None)
Quarter: 2008Q4

REPORT INFORMATION
  Report Type: 
  Country: None (occurrence: None)
  Receive Date: 20081030
  Receipt Date: 20081022
  Transmission Date: 20090506
  Serious: Yes (Other)
  Sender: FDA-Public Use
  Company Number: GXKR2008GB10108

PATIENT
  Age: 31 Year
  Sex: Female

DRUGS (5)
  1. OMEPRAZOLE [Suspect]
     Dosage: 20 MG, ORAL
     Route: 048
     Dates: start: 20080922, end: 20080922
  2. GAVISCON [Suspect]
     Dosage: 15 ML, BID, ORAL
     Route: 048
     Dates: start: 20080922, end: 20080922
  3. CARBAMAZEPINE [Concomitant]
  4. LAMOTRIGINE [Concomitant]
  5. LEVETIRACETAM [Concomitant]

REACTIONS (2)
  - CONDITION AGGRAVATED [None]
  - EPILEPSY [None]
